FAERS Safety Report 5414801-4 (Version None)
Quarter: 2007Q3

REPORT INFORMATION
  Report Type: 
  Country: None (occurrence: None)
  Receive Date: 20070813
  Receipt Date: 20070801
  Transmission Date: 20080115
  Serious: Yes (Hospitalization)
  Sender: FDA-Public Use
  Company Number: 2007SP014189

PATIENT
  Age: 65 Year
  Sex: Female

DRUGS (2)
  1. ASMANEX TWISTHALER [Suspect]
     Indication: ASTHMA
     Dosage: PO
     Route: 048
  2. PREDNISONE [Concomitant]

REACTIONS (3)
  - DEVICE MALFUNCTION [None]
  - HIP FRACTURE [None]
  - PHARMACEUTICAL PRODUCT COMPLAINT [None]
